FAERS Safety Report 10576220 (Version 6)
Quarter: 2015Q3

REPORT INFORMATION
  Report Type: Spontaneous
  Country: US (occurrence: US)
  Receive Date: 20141111
  Receipt Date: 20150828
  Transmission Date: 20151125
  Serious: No
  Sender: FDA-Public Use
  Company Number: US-PFIZER INC-2014307243

PATIENT
  Age: 17 Year
  Sex: Male
  Weight: 53 kg

DRUGS (10)
  1. OXYCODONE [Concomitant]
     Active Substance: OXYCODONE
     Indication: ANALGESIC THERAPY
     Dosage: UNK
     Route: 048
  2. PROCHLORPERAZINE. [Concomitant]
     Active Substance: PROCHLORPERAZINE
     Indication: NAUSEA
     Dosage: UNK
     Route: 048
  3. GENOTROPIN [Suspect]
     Active Substance: SOMATROPIN
     Indication: GROWTH HORMONE DEFICIENCY
     Dosage: 2.2MG ALTERNATING WITH 2.1MG, DAILY
     Route: 058
     Dates: start: 2013
  4. PROCHLORPERAZINE. [Concomitant]
     Active Substance: PROCHLORPERAZINE
     Indication: VOMITING
     Dosage: 10 MG, EVERY 8 HOUR
     Route: 048
     Dates: start: 20140919
  5. GENOTROPIN [Suspect]
     Active Substance: SOMATROPIN
     Indication: HYPOPITUITARISM
     Dosage: 2.4 MG, DAILY, 7 DAYS/WEEK
     Route: 058
     Dates: start: 201311
  6. SUCRALFATE. [Concomitant]
     Active Substance: SUCRALFATE
     Indication: GASTRIC ULCER
     Dosage: UNK
     Route: 048
  7. GENOTROPIN [Suspect]
     Active Substance: SOMATROPIN
     Dosage: 2.1 MG AND 2.2 MG 5Q DAILY
     Route: 058
     Dates: start: 201311
  8. OXYCODONE [Concomitant]
     Active Substance: OXYCODONE
     Dosage: 2.5 - 5 MG EVERY SIX HOURS
     Route: 048
     Dates: start: 20140919
  9. GENOTROPIN [Suspect]
     Active Substance: SOMATROPIN
     Indication: DWARFISM
     Dosage: 2.2MG ALTERNATING WITH 2.1MG, DAILY
     Dates: start: 201311
  10. SUCRALFATE. [Concomitant]
     Active Substance: SUCRALFATE
     Indication: GASTRIC DISORDER
     Dosage: 1 G, 4X/DAY
     Route: 048
     Dates: start: 20140919

REACTIONS (5)
  - Spinal pain [Unknown]
  - Joint stiffness [Not Recovered/Not Resolved]
  - Back pain [Unknown]
  - Arthropathy [Not Recovered/Not Resolved]
  - Arthralgia [Recovered/Resolved]

NARRATIVE: CASE EVENT DATE: 20130718
